FAERS Safety Report 24343915 (Version 1)
Quarter: 2024Q3

REPORT INFORMATION
  Report Type: Spontaneous
  Country: US (occurrence: US)
  Receive Date: 20240920
  Receipt Date: 20240920
  Transmission Date: 20241017
  Serious: No
  Sender: BRAEBURN PHARMACEUTICALS
  Company Number: US-BRAEBURN-US-BRA-24-000536

PATIENT
  Age: 38 Year
  Sex: Male

DRUGS (1)
  1. BRIXADI [Suspect]
     Active Substance: BUPRENORPHINE
     Indication: Drug use disorder
     Dosage: 96 MILLIGRAM, MONTHLY
     Route: 058
     Dates: start: 20240320, end: 20240605

REACTIONS (2)
  - Injection site mass [Recovering/Resolving]
  - Malabsorption from injection site [Unknown]

NARRATIVE: CASE EVENT DATE: 20240501
